FAERS Safety Report 17084764 (Version 4)
Quarter: 2019Q4

REPORT INFORMATION
  Report Type: Report from Study
  Country: DE (occurrence: DE)
  Receive Date: 20191127
  Receipt Date: 20191223
  Transmission Date: 20200122
  Serious: Yes (Hospitalization)
  Sender: FDA-Public Use
  Company Number: DE-ACTELION-A-NJ2019-198849

PATIENT
  Age: 71 Year
  Sex: Female

DRUGS (3)
  1. VENTAVIS [Suspect]
     Active Substance: ILOPROST
     Indication: PULMONARY ARTERIAL HYPERTENSION
     Dosage: 20 MCG/ML,  6 TIMES A DAY
     Route: 055
     Dates: start: 20190904
  2. VENTAVIS [Suspect]
     Active Substance: ILOPROST
     Dosage: 20 MCG/ML,  6 TIMES A DAY
     Route: 055
     Dates: start: 201911
  3. VENTAVIS [Suspect]
     Active Substance: ILOPROST
     Dosage: 20 MCG/ML, QID
     Route: 055
     Dates: start: 201911

REACTIONS (3)
  - Wound [Unknown]
  - Blood iron abnormal [Recovering/Resolving]
  - Haemoglobin abnormal [Recovering/Resolving]

NARRATIVE: CASE EVENT DATE: 20191120
